FAERS Safety Report 7767187-4 (Version None)
Quarter: 2011Q3

REPORT INFORMATION
  Report Type: 
  Country: None (occurrence: None)
  Receive Date: 20110922
  Receipt Date: 20100816
  Transmission Date: 20111222
  Serious: No
  Sender: FDA-Public Use
  Company Number: US-ASTRAZENECA-2010SE38350

PATIENT
  Sex: Male
  Weight: 95.3 kg

DRUGS (5)
  1. SUGAR PILLS [Concomitant]
     Indication: DIABETES MELLITUS
  2. SEROQUEL XR [Suspect]
     Indication: MENTAL DISORDER
     Route: 048
     Dates: start: 20090101, end: 20100801
  3. BENZTROPINE MESYLATE [Concomitant]
  4. PROZAC [Concomitant]
  5. SEROQUEL XR [Suspect]
     Indication: SUICIDAL IDEATION
     Route: 048
     Dates: start: 20090101, end: 20100801

REACTIONS (2)
  - DRUG DOSE OMISSION [None]
  - BELLIGERENCE [None]
